FAERS Safety Report 7998428-6 (Version None)
Quarter: 2011Q4

REPORT INFORMATION
  Report Type: 
  Country: None (occurrence: None)
  Receive Date: 20111221
  Receipt Date: 20111017
  Transmission Date: 20120403
  Serious: No
  Sender: FDA-Public Use
  Company Number: US-GLAXOSMITHKLINE-A0949442A

PATIENT
  Sex: Female

DRUGS (1)
  1. LOVAZA [Suspect]
     Indication: BLOOD TRIGLYCERIDES INCREASED
     Dosage: 1000MG UNKNOWN
     Route: 065
     Dates: start: 20100331

REACTIONS (2)
  - GASTRIC DISORDER [None]
  - DRUG INEFFECTIVE [None]
